FAERS Safety Report 23831322 (Version 3)
Quarter: 2024Q3

REPORT INFORMATION
  Report Type: Spontaneous
  Country: US (occurrence: US)
  Receive Date: 20240508
  Receipt Date: 20240826
  Transmission Date: 20241017
  Serious: No
  Sender: PFIZER
  Company Number: US-PFIZER INC-PV202400029307

PATIENT
  Age: 67 Year
  Sex: Female

DRUGS (20)
  1. IBRANCE [Suspect]
     Active Substance: PALBOCICLIB
     Dosage: 100 MG, CYCLIC (DAILY, DAYS 1-21 THEN OFF 7 DAYS)
     Route: 048
     Dates: start: 20240223
  2. IBRANCE [Suspect]
     Active Substance: PALBOCICLIB
     Dosage: 100 MG, CYCLIC (DAILY, DAYS 1-21 THEN OFF 7 DAYS)
     Route: 048
  3. IBRANCE [Suspect]
     Active Substance: PALBOCICLIB
     Dosage: 100 MG, CYCLIC (DAILY, DAYS 1-21 THEN OFF 7 DAYS)
     Route: 048
  4. IBRANCE [Suspect]
     Active Substance: PALBOCICLIB
     Dosage: 100 MG, CYCLIC (DAILY, DAYS 1-21 THEN OFF 7 DAYS)
     Route: 048
  5. ALBUTEROL SULFATE [Concomitant]
     Active Substance: ALBUTEROL SULFATE
  6. ALLOPURINOL [Concomitant]
     Active Substance: ALLOPURINOL
  7. ALPRAZOLAM [Concomitant]
     Active Substance: ALPRAZOLAM
  8. ASPIRIN [Concomitant]
     Active Substance: ASPIRIN
  9. EZETIMIBE [Concomitant]
     Active Substance: EZETIMIBE
  10. FUROSEMIDE [Concomitant]
     Active Substance: FUROSEMIDE
  11. PREGABALIN [Concomitant]
     Active Substance: PREGABALIN
  12. POTASSIUM CHLORIDE [Concomitant]
     Active Substance: POTASSIUM CHLORIDE
  13. GABAPENTIN [Concomitant]
     Active Substance: GABAPENTIN
     Dosage: UNK
  14. HYDROMORPHONE [Concomitant]
     Active Substance: HYDROMORPHONE
  15. ALBUTEROL\IPRATROPIUM [Concomitant]
     Active Substance: ALBUTEROL\IPRATROPIUM
     Dosage: INHALATION
  16. LETROZOLE [Concomitant]
     Active Substance: LETROZOLE
  17. LOSARTAN [Concomitant]
     Active Substance: LOSARTAN\LOSARTAN POTASSIUM
  18. METOPROLOL SUCCINATE [Concomitant]
     Active Substance: METOPROLOL SUCCINATE
  19. MONTELUKAST [Concomitant]
     Active Substance: MONTELUKAST SODIUM
  20. PAROXETINE [Concomitant]
     Active Substance: PAROXETINE

REACTIONS (6)
  - Cough [Recovering/Resolving]
  - Chest pain [Recovering/Resolving]
  - Diarrhoea [Recovered/Resolved]
  - Abdominal pain upper [Recovering/Resolving]
  - Contusion [Recovered/Resolved]
  - Chronic obstructive pulmonary disease [Recovered/Resolved]

NARRATIVE: CASE EVENT DATE: 20240201
